FAERS Safety Report 20698458 (Version 1)
Quarter: 2022Q2

REPORT INFORMATION
  Report Type: Spontaneous
  Country: US (occurrence: US)
  Receive Date: 20220412
  Receipt Date: 20220412
  Transmission Date: 20220720
  Serious: No
  Sender: FDA-Public Use
  Company Number: US-BION-009776

PATIENT
  Age: 84 Year
  Sex: Male

DRUGS (3)
  1. ALEVE [Suspect]
     Active Substance: NAPROXEN SODIUM
     Indication: Product used for unknown indication
     Dosage: 1 CAPSULE/LIQUID GEL
     Route: 048
     Dates: start: 20210520, end: 20210520
  2. ADVIL [Concomitant]
     Active Substance: IBUPROFEN
     Route: 048
  3. TYLENOL [Concomitant]
     Active Substance: ACETAMINOPHEN
     Route: 048

REACTIONS (1)
  - Therapeutic product effect prolonged [Not Recovered/Not Resolved]

NARRATIVE: CASE EVENT DATE: 20210520
